FAERS Safety Report 5059883-7 (Version None)
Quarter: 2006Q3

REPORT INFORMATION
  Report Type: 
  Country: None (occurrence: None)
  Receive Date: 20060724
  Receipt Date: 20060509
  Transmission Date: 20061208
  Serious: Yes (Death, Life-Threatening, Hospitalization)
  Sender: FDA-Public Use
  Company Number: JP-SANOFI-SYNTHELABO-A01200603715

PATIENT
  Sex: Male

DRUGS (8)
  1. DECACORT [Concomitant]
     Route: 041
     Dates: start: 20060510, end: 20060512
  2. NEO-MINOPHAGEN C [Concomitant]
     Route: 042
     Dates: start: 20060427, end: 20060430
  3. MAGENSOL [Concomitant]
     Route: 041
     Dates: start: 20060301, end: 20060412
  4. CALCICOL [Concomitant]
     Route: 041
     Dates: start: 20060301, end: 20060412
  5. DECADRON [Concomitant]
     Route: 041
     Dates: start: 20060301, end: 20060412
  6. CALCIUM LEVOFOLINATE [Suspect]
     Dosage: INFUSION ON D1+2
     Route: 042
     Dates: start: 20060412, end: 20060413
  7. FLUOROURACIL [Suspect]
     Dosage: 625MG/BODY=395.6MG/M2 IN BOLUS THEN 950MG/BODY=601.3MG/M2 AS CONTINUOUS INFUSION DAYS 1 AND 2
     Route: 042
     Dates: start: 20060412, end: 20060413
  8. OXALIPLATIN [Suspect]
     Indication: RECTAL CANCER
     Route: 042
     Dates: start: 20060412, end: 20060412

REACTIONS (12)
  - ALANINE AMINOTRANSFERASE INCREASED [None]
  - ASPARTATE AMINOTRANSFERASE INCREASED [None]
  - CARDIAC FAILURE [None]
  - CONVULSION [None]
  - DYSAESTHESIA PHARYNX [None]
  - FACE OEDEMA [None]
  - LARYNGEAL OEDEMA [None]
  - LIVER DISORDER [None]
  - OBSTRUCTIVE AIRWAYS DISORDER [None]
  - RENAL FAILURE [None]
  - RHABDOMYOLYSIS [None]
  - THROAT TIGHTNESS [None]
